FAERS Safety Report 22598297 (Version 2)
Quarter: 2023Q2

REPORT INFORMATION
  Report Type: Spontaneous
  Country: HU (occurrence: HU)
  Receive Date: 20230614
  Receipt Date: 20230627
  Transmission Date: 20230722
  Serious: Yes (Hospitalization, Other)
  Sender: FDA-Public Use
  Company Number: HU-Gedeon Richter Plc.-2023_GR_004615

PATIENT
  Age: 38 Year
  Sex: Female

DRUGS (1)
  1. LEVONORGESTREL [Suspect]
     Active Substance: LEVONORGESTREL
     Indication: Product used for unknown indication
     Dosage: 52 MG SINGLE, AT AN INITIAL RELEASE RATE OF 20 MICROGRAMS PER 24 HOURS
     Route: 015
     Dates: start: 20220726, end: 20230515

REACTIONS (10)
  - Seizure [Unknown]
  - Fluid retention [Unknown]
  - Therapeutic product effect incomplete [Unknown]
  - Noninfective oophoritis [Not Recovered/Not Resolved]
  - Weight increased [Unknown]
  - Uterine spasm [Not Recovered/Not Resolved]
  - Pelvic inflammatory disease [Unknown]
  - Uterine inflammation [Not Recovered/Not Resolved]
  - Nephritis [Unknown]
  - Pyrexia [Unknown]

NARRATIVE: CASE EVENT DATE: 20230214
